FAERS Safety Report 5998898-9 (Version None)
Quarter: 2008Q4

REPORT INFORMATION
  Report Type: 
  Country: None (occurrence: None)
  Receive Date: 20081213
  Receipt Date: 20080724
  Transmission Date: 20090506
  Serious: No
  Sender: FDA-Public Use
  Company Number: US-AMGEN-KDL297088

PATIENT
  Sex: Female

DRUGS (9)
  1. ENBREL [Suspect]
     Indication: DRUG USE FOR UNKNOWN INDICATION
     Dates: start: 20071101
  2. OXYCONTIN [Concomitant]
  3. OXYCODONE HCL [Concomitant]
  4. LIDODERM [Concomitant]
  5. DIAZEPAM [Concomitant]
  6. NAMENDA [Concomitant]
  7. FOLIC ACID [Concomitant]
  8. METHOTREXATE [Concomitant]
  9. POTASSIUM CHLORIDE [Concomitant]

REACTIONS (1)
  - LATEX ALLERGY [None]
